FAERS Safety Report 8506205-2 (Version None)
Quarter: 2012Q3

REPORT INFORMATION
  Report Type: 
  Country: None (occurrence: None)
  Receive Date: 20120712
  Receipt Date: 20120702
  Transmission Date: 20120928
  Serious: Yes (Other)
  Sender: FDA-Public Use
  Company Number: GB-ROCHE-1083642

PATIENT
  Age: 39 Year
  Sex: Male
  Weight: 86 kg

DRUGS (10)
  1. COPEGUS [Interacting]
     Indication: PRODUCT USED FOR UNKNOWN INDICATION
     Dates: start: 20111101
  2. ORPHENADRINE HYDROCHLORIDE [Interacting]
     Dates: start: 20120524
  3. GIANT BRAND STOOL SOFTENER (SODIUM DOCUSATE) [Concomitant]
  4. VITAMIN B COMPOUND [Concomitant]
  5. ORPHENADRINE HYDROCHLORIDE [Interacting]
     Indication: PRODUCT USED FOR UNKNOWN INDICATION
     Dates: end: 20120523
  6. MIRTAZAPINE [Concomitant]
  7. RISPERDAL CONSTA [Concomitant]
     Route: 030
  8. PEGASYS [Suspect]
     Indication: PRODUCT USED FOR UNKNOWN INDICATION
     Route: 058
     Dates: start: 20111101
  9. MULTI-VITAMIN [Concomitant]
  10. SENNA-MINT WAF [Concomitant]

REACTIONS (3)
  - PALPITATIONS [None]
  - DRUG INTERACTION [None]
  - HALLUCINATION, AUDITORY [None]
